FAERS Safety Report 21329514 (Version 2)
Quarter: 2022Q3

REPORT INFORMATION
  Report Type: Report from Study
  Country: IT (occurrence: IT)
  Receive Date: 20220913
  Receipt Date: 20220921
  Transmission Date: 20221027
  Serious: Yes (Life-Threatening, Hospitalization)
  Sender: FDA-Public Use
  Company Number: IT-PFIZER INC-PV202200060625

PATIENT
  Age: 34 Year
  Sex: Female

DRUGS (13)
  1. GEMTUZUMAB OZOGAMICIN [Suspect]
     Active Substance: GEMTUZUMAB OZOGAMICIN
     Indication: Acute myeloid leukaemia
     Dosage: 5 MG, DAILY (ONCE ON DAYS 1, 4, 7)
     Route: 042
     Dates: start: 20220816, end: 20220816
  2. GEMTUZUMAB OZOGAMICIN [Suspect]
     Active Substance: GEMTUZUMAB OZOGAMICIN
     Dosage: 5 MG, DAILY (ONCE ON DAYS 1, 4, 7)
     Route: 042
     Dates: start: 20220819, end: 20220819
  3. GEMTUZUMAB OZOGAMICIN [Suspect]
     Active Substance: GEMTUZUMAB OZOGAMICIN
     Dosage: 5 MG, DAILY (ONCE ON DAYS 1, 4, 7)
     Route: 042
     Dates: start: 20220822, end: 20220822
  4. DAUNORUBICIN HYDROCHLORIDE [Suspect]
     Active Substance: DAUNORUBICIN HYDROCHLORIDE
     Indication: Acute myeloid leukaemia
     Dosage: 100 MG, DAILY
     Route: 042
     Dates: start: 20220816, end: 20220818
  5. CYTARABINE [Suspect]
     Active Substance: CYTARABINE
     Indication: Acute myeloid leukaemia
     Dosage: 340 MG, DAILY
     Route: 042
     Dates: start: 20220816, end: 20220822
  6. TRANEXAMIC ACID [Concomitant]
     Active Substance: TRANEXAMIC ACID
  7. OMEPRAZOLE [Concomitant]
     Active Substance: OMEPRAZOLE
  8. EN [Concomitant]
     Active Substance: DELORAZEPAM
  9. ALUMINUM HYDROXIDE\DIMETHICONE\MAGNESIUM HYDROXIDE [Concomitant]
     Active Substance: ALUMINUM HYDROXIDE\DIMETHICONE\MAGNESIUM HYDROXIDE
  10. LEVOFLOXACIN [Concomitant]
     Active Substance: LEVOFLOXACIN
  11. POSACONAZOLE [Concomitant]
     Active Substance: POSACONAZOLE
  12. MYCOSTATIN [Concomitant]
     Active Substance: NYSTATIN
  13. DEURSIL [Concomitant]
     Active Substance: URSODIOL

REACTIONS (1)
  - Sepsis [Not Recovered/Not Resolved]

NARRATIVE: CASE EVENT DATE: 20220824
